FAERS Safety Report 9863116 (Version 1)
Quarter: 2014Q1

REPORT INFORMATION
  Report Type: Spontaneous
  Country: US (occurrence: US)
  Receive Date: 20140203
  Receipt Date: 20140203
  Transmission Date: 20141002
  Serious: Yes (Death, Hospitalization)
  Sender: FDA-Public Use
  Company Number: CHPA2014US001447

PATIENT
  Sex: Female

DRUGS (1)
  1. ACETAMINOPHEN (PARACETAMOL) [Suspect]
     Route: 048

REACTIONS (9)
  - Completed suicide [Fatal]
  - Toxicity to various agents [Fatal]
  - Acute hepatic failure [Fatal]
  - Hepatic necrosis [Fatal]
  - Duodenal ulcer [Fatal]
  - Hepatitis toxic [Fatal]
  - Depressed level of consciousness [Fatal]
  - Agitation [Fatal]
  - Dehydration [Fatal]
